FAERS Safety Report 8874059 (Version 2)
Quarter: 2012Q4

REPORT INFORMATION
  Report Type: Report from Study
  Country: DE (occurrence: DE)
  Receive Date: 20121031
  Receipt Date: 20121114
  Transmission Date: 20130627
  Serious: Yes (Hospitalization)
  Sender: FDA-Public Use
  Company Number: DE-AMGEN-DEUCT2012058170

PATIENT
  Age: 58 Year
  Sex: Female
  Weight: 57 kg

DRUGS (16)
  1. ETANERCEPT [Suspect]
     Indication: RHEUMATOID ARTHRITIS
     Dosage: 50 mg, weekly
     Route: 058
     Dates: start: 20110829
  2. SIMVASTATIN [Concomitant]
     Indication: HYPERCHOLESTEROLAEMIA
     Dosage: 20 UNK, 1x/day
     Dates: start: 20110418
  3. ATMADISC [Concomitant]
     Indication: BRONCHIAL HYPERREACTIVITY
     Dosage: UNK
     Dates: start: 201011
  4. SALBUTAMOL [Concomitant]
     Indication: BRONCHIAL HYPERREACTIVITY
     Dosage: UNK
     Dates: start: 201011
  5. ALENDRONIC ACID [Concomitant]
     Indication: OSTEOPOROSIS
     Dosage: 70 mg, weekly
     Dates: start: 20090929
  6. CALCIUM CITRATE W/COLECALCIFEROL [Concomitant]
     Indication: OSTEOPOROSIS
     Dosage: 1000/800 per day
     Dates: start: 20090929
  7. SULFASALAZIN [Concomitant]
     Indication: RHEUMATOID ARTHRITIS
     Dosage: 500 mg up to 3g, UNK
     Dates: start: 20090729
  8. PREDNISOLON                        /00016201/ [Concomitant]
     Indication: RHEUMATOID ARTHRITIS
     Dosage: 7.5 UNK, UNK
     Dates: start: 1995, end: 20120403
  9. PREDNISOLON                        /00016201/ [Concomitant]
     Dosage: 20 mg, 1x/day
     Dates: start: 20120404
  10. NOVALGIN                           /06276704/ [Concomitant]
     Dosage: 500 UNK, prn
  11. FOLIC ACID [Concomitant]
     Dosage: 5 mg, 24hrs after MTX therapy
  12. PANTOPRAZOL [Concomitant]
     Dosage: 40 UNK, 1x/day
  13. CICLOSPORIN [Concomitant]
     Indication: RHEUMATOID ARTHRITIS
     Dosage: 50 UNK, 2x/day
     Dates: start: 200912
  14. CICLOSPORIN [Concomitant]
     Dosage: 50 UNK, 2x/day
     Dates: start: 200912
  15. MTX                                /00113801/ [Concomitant]
     Dosage: 10 mg, weekly
     Route: 048
  16. NOVALGIN                           /06276704/ [Concomitant]
     Dosage: 500 UNK, as needed

REACTIONS (2)
  - Phlebitis infective [Recovered/Resolved]
  - Gastritis [Recovered/Resolved]
